FAERS Safety Report 8382319 (Version 2)
Quarter: 2014Q1

REPORT INFORMATION
  Report Type: Spontaneous
  Country: US (occurrence: US)
  Receive Date: 20120201
  Receipt Date: 20140316
  Transmission Date: 20141002
  Serious: Yes (Hospitalization, Other)
  Sender: FDA-Public Use
  Company Number: US-BAYER-2012-007872

PATIENT
  Sex: Female
  Weight: 74.83 kg

DRUGS (3)
  1. MIRENA [Suspect]
     Indication: CONTRACEPTION
     Dosage: 20 MCG/24HR, CONT
     Route: 015
     Dates: start: 20070112, end: 20120123
  2. OXYCODONE [Concomitant]
     Indication: MUSCLE SPASMS
     Dosage: UNK
     Dates: start: 2007
  3. IBUPROFEN [Concomitant]
     Indication: MUSCLE SPASMS
     Dosage: UNK
     Dates: start: 2007

REACTIONS (25)
  - Uterine perforation [Recovered/Resolved]
  - Abortion spontaneous [None]
  - Endometriosis [None]
  - Ovarian fibroma [None]
  - Uterine leiomyoma [None]
  - Pelvic inflammatory disease [None]
  - Menstruation delayed [Recovered/Resolved]
  - Device dislocation [Recovered/Resolved]
  - Uterine enlargement [Recovered/Resolved]
  - Pregnancy with contraceptive device [Recovered/Resolved]
  - Haemorrhage in pregnancy [None]
  - Polymenorrhoea [None]
  - Pyrexia [None]
  - Vomiting [None]
  - Nausea [None]
  - Vomiting [None]
  - Pyrexia [None]
  - Genital haemorrhage [None]
  - Pelvic pain [Recovered/Resolved]
  - Depression [None]
  - Anxiety [None]
  - Injury [Recovered/Resolved]
  - Emotional distress [None]
  - Device issue [None]
  - Ovarian cyst [None]
